FAERS Safety Report 8812774 (Version 1)
Quarter: 2012Q4

REPORT INFORMATION
  Report Type: 
  Country: US (occurrence: US)
  Receive Date: 20120927
  Receipt Date: 20120927
  Transmission Date: 20130627
  Serious: Yes (Hospitalization)
  Sender: FDA-Public Use
  Company Number: US-ELI_LILLY_AND_COMPANY-US201208001651

PATIENT
  Age: 51 Year
  Sex: Male
  Weight: 117.91 kg

DRUGS (11)
  1. EFFIENT [Suspect]
     Dosage: UNK
     Dates: start: 20111129
  2. ASPIRIN [Concomitant]
  3. CITALOPRAM [Concomitant]
  4. METOPROLOL [Concomitant]
  5. ALTACE [Concomitant]
  6. FISH OIL [Concomitant]
  7. ZETIA [Concomitant]
  8. LIPITOR [Concomitant]
  9. NITROGLYCERIN [Concomitant]
     Route: 042
  10. NITROGLYCERIN [Concomitant]
     Route: 060
  11. NITROGLYCERIN [Concomitant]
     Dosage: UNK, prn

REACTIONS (2)
  - Angina unstable [Unknown]
  - Coronary artery restenosis [Unknown]
